FAERS Safety Report 8480225-9 (Version None)
Quarter: 2012Q2

REPORT INFORMATION
  Report Type: 
  Country: None (occurrence: None)
  Receive Date: 20120629
  Receipt Date: 20120622
  Transmission Date: 20120825
  Serious: Yes (Hospitalization)
  Sender: FDA-Public Use
  Company Number: US-RB-040453-12

PATIENT
  Age: 41 Year
  Sex: Male

DRUGS (2)
  1. SUBOXONE [Suspect]
     Indication: DRUG DEPENDENCE
     Dosage: TAPERED UP FROM 8 MG TO 16 MG DAILY
     Route: 060
     Dates: start: 20101101, end: 20120401
  2. SUBOXONE [Suspect]
     Dosage: TAPERED TO UNKNOWN DOSE AND STOPPED
     Route: 060
     Dates: start: 20120401, end: 20120417

REACTIONS (7)
  - UNDERDOSE [None]
  - DRUG WITHDRAWAL SYNDROME [None]
  - RESTLESS LEGS SYNDROME [None]
  - WRONG TECHNIQUE IN DRUG USAGE PROCESS [None]
  - FATIGUE [None]
  - DEPRESSION [None]
  - MUSCLE SPASMS [None]
